FAERS Safety Report 7808575-7 (Version None)
Quarter: 2011Q4

REPORT INFORMATION
  Report Type: 
  Country: None (occurrence: None)
  Receive Date: 20111012
  Receipt Date: 20111010
  Transmission Date: 20120403
  Serious: No
  Sender: FDA-Public Use
  Company Number: US-PFIZER INC-2011241906

PATIENT
  Sex: Male
  Weight: 77.098 kg

DRUGS (8)
  1. VITAMIN TAB [Concomitant]
  2. ARTHROTEC [Suspect]
     Indication: PAIN
     Dosage: 75 MG, 2X/DAY
     Route: 048
     Dates: start: 20111003
  3. LOVASTATIN [Concomitant]
     Dosage: UNK
  4. CO-Q-10 [Concomitant]
     Dosage: UNK
  5. NEXIUM [Concomitant]
     Dosage: UNK
  6. LOTREL [Concomitant]
     Dosage: UNK
  7. CELEBREX [Suspect]
     Indication: PAIN
     Dosage: 200 MG, 1X/DAY
     Route: 048
     Dates: start: 20090101, end: 20111002
  8. MAGNESIUM [Concomitant]
     Dosage: UNK

REACTIONS (1)
  - ABDOMINAL DISTENSION [None]
